FAERS Safety Report 4476157-3 (Version None)
Quarter: 2004Q3

REPORT INFORMATION
  Report Type: 
  Country: None (occurrence: None)
  Receive Date: 20040923
  Receipt Date: 20040805
  Transmission Date: 20050211
  Serious: No
  Sender: FDA-Public Use
  Company Number: USA040874787

PATIENT
  Sex: Female

DRUGS (1)
  1. FORTEO [Suspect]
     Indication: COMPRESSION FRACTURE
     Dates: start: 20040701

REACTIONS (4)
  - ALOPECIA [None]
  - HAIR DISORDER [None]
  - HAIR TEXTURE ABNORMAL [None]
  - INJECTION SITE ERYTHEMA [None]
